FAERS Safety Report 15933254 (Version 2)
Quarter: 2019Q3

REPORT INFORMATION
  Report Type: Spontaneous
  Country: JP (occurrence: JP)
  Receive Date: 20190207
  Receipt Date: 20190701
  Transmission Date: 20191004
  Serious: Yes (Other)
  Sender: FDA-Public Use
  Company Number: JP-PFIZER INC-2019049138

PATIENT
  Age: 66 Year
  Sex: Male
  Weight: 61 kg

DRUGS (18)
  1. VFEND [Suspect]
     Active Substance: VORICONAZOLE
     Indication: BRONCHOPULMONARY ASPERGILLOSIS
     Dosage: UNK
     Route: 042
  2. FEBRIC [Concomitant]
     Indication: HYPERURICAEMIA
     Dosage: 20 MG, 1X/DAY
     Route: 048
  3. ROZEREM [Concomitant]
     Active Substance: RAMELTEON
     Indication: INSOMNIA
     Dosage: 8 MG, 1X/DAY
     Route: 048
     Dates: start: 20180420, end: 20180502
  4. CARBAZOCHROME [Concomitant]
     Active Substance: CARBAZOCHROME
     Indication: HAEMOPTYSIS
     Dosage: 30 MG, 3X/DAY
     Route: 048
     Dates: start: 20180413
  5. TRANEXAMIC ACID. [Concomitant]
     Active Substance: TRANEXAMIC ACID
     Indication: HAEMOPTYSIS
     Dosage: 250 MG, 3X/DAY
     Route: 048
     Dates: start: 20180413
  6. CEFTRIAXONE. [Concomitant]
     Active Substance: CEFTRIAXONE
     Indication: BRONCHITIS
     Dosage: 2 G, 1X/DAY
     Route: 042
     Dates: start: 20180423, end: 20180427
  7. SOLANAX [Concomitant]
     Active Substance: ALPRAZOLAM
     Indication: ANXIETY DISORDER
     Dosage: 0.4 MG, 1X/DAY
     Route: 048
  8. VFEND [Suspect]
     Active Substance: VORICONAZOLE
     Dosage: 200 MG, 2X/DAY
     Route: 048
     Dates: start: 20180411, end: 20180420
  9. L CARTIN FF [Concomitant]
     Active Substance: LEVOCARNITINE
     Indication: CHRONIC KIDNEY DISEASE
     Dosage: 250 MG, 2X/DAY
     Route: 048
  10. MUCOSTA [Concomitant]
     Active Substance: REBAMIPIDE
     Indication: GASTRITIS
     Dosage: 100 MG, 3X/DAY
     Route: 048
  11. AZOSEMIDE [Concomitant]
     Active Substance: AZOSEMIDE
     Indication: CARDIAC FAILURE
     Dosage: 30 MG, 1X/DAY
     Route: 048
     Dates: start: 20180421
  12. MINOCYCLINE [Concomitant]
     Active Substance: MINOCYCLINE HYDROCHLORIDE
     Indication: BRONCHITIS
     Dosage: 100 MG, 2X/DAY
     Route: 048
     Dates: start: 20180427, end: 20180501
  13. VFEND [Suspect]
     Active Substance: VORICONAZOLE
     Indication: HAEMOPTYSIS
  14. RABEPRAZOLE [Concomitant]
     Active Substance: RABEPRAZOLE
     Indication: GASTROOESOPHAGEAL REFLUX DISEASE
     Dosage: 10 MG, 1X/DAY
     Route: 048
  15. PAXIL [Concomitant]
     Active Substance: PAROXETINE HYDROCHLORIDE
     Indication: ANXIETY DISORDER
     Dosage: 20 MG, 1X/DAY
     Route: 048
  16. VFEND [Suspect]
     Active Substance: VORICONAZOLE
     Indication: ASPERGILLOMA
     Dosage: 400 MG, 2X/DAY
     Route: 048
     Dates: start: 20180410, end: 20180411
  17. LENDORMIN D [Concomitant]
     Active Substance: BROTIZOLAM
     Indication: INSOMNIA
     Dosage: 0.25 MG, 1X/DAY
     Route: 048
  18. CARBON [Concomitant]
     Active Substance: ACTIVATED CHARCOAL
     Indication: RENAL FAILURE
     Dosage: 2 G, 3X/DAY
     Route: 048

REACTIONS (6)
  - Photosensitivity reaction [Recovered/Resolved]
  - Pyrexia [Recovering/Resolving]
  - Blood pressure increased [Recovering/Resolving]
  - Cardiac failure [Recovered/Resolved]
  - Haemoglobin decreased [Recovering/Resolving]
  - Lymphocyte count decreased [Recovered/Resolved]

NARRATIVE: CASE EVENT DATE: 20180420
